FAERS Safety Report 12068699 (Version 2)
Quarter: 2016Q1

REPORT INFORMATION
  Report Type: Spontaneous
  Country: JP (occurrence: JP)
  Receive Date: 20160211
  Receipt Date: 20160216
  Transmission Date: 20160526
  Serious: Yes (Death, Hospitalization)
  Sender: FDA-Public Use
  Company Number: JP-ELI_LILLY_AND_COMPANY-JP201512002058

PATIENT
  Age: 76 Year
  Sex: Male
  Weight: 52.7 kg

DRUGS (1)
  1. CYRAMZA [Suspect]
     Active Substance: RAMUCIRUMAB
     Indication: GASTRIC CANCER RECURRENT
     Dosage: 8 MG/M2, OTHER
     Route: 042
     Dates: start: 20151110, end: 20151110

REACTIONS (4)
  - Proteinuria [Unknown]
  - Malignant neoplasm progression [Fatal]
  - Oedema peripheral [Unknown]
  - Jaundice cholestatic [Unknown]

NARRATIVE: CASE EVENT DATE: 20151124
